FAERS Safety Report 5144404-0 (Version None)
Quarter: 2006Q4

REPORT INFORMATION
  Report Type: 
  Country: None (occurrence: None)
  Receive Date: 20061030
  Receipt Date: 20061017
  Transmission Date: 20070319
  Serious: Yes (Other)
  Sender: FDA-Public Use
  Company Number: 2006116922

PATIENT
  Age: 23 Year
  Sex: Female
  Weight: 63.5036 kg

DRUGS (2)
  1. GEODON [Suspect]
     Indication: BIPOLAR DISORDER
     Dosage: 120 MG (60 MG, 2 IN 1 D), ORAL
     Route: 048
     Dates: start: 20060901, end: 20060904
  2. GEODON [Suspect]
     Indication: MANIA
     Dosage: 120 MG (60 MG, 2 IN 1 D), ORAL
     Route: 048
     Dates: start: 20060901, end: 20060904

REACTIONS (4)
  - DRUG HYPERSENSITIVITY [None]
  - DYSPHAGIA [None]
  - INFECTION [None]
  - PHARYNGEAL OEDEMA [None]
